FAERS Safety Report 5065908-5 (Version None)
Quarter: 2006Q3

REPORT INFORMATION
  Report Type: 
  Country: None (occurrence: None)
  Receive Date: 20060728
  Receipt Date: 20060728
  Transmission Date: 20061208
  Serious: No
  Sender: FDA-Public Use
  Company Number: None

PATIENT
  Age: 53 Year
  Sex: Female
  Weight: 83.0083 kg

DRUGS (1)
  1. LIPITOR [Suspect]
     Indication: BLOOD CHOLESTEROL INCREASED
     Dosage: ONE TABLET    ONCE A DAY   PO
     Route: 048
     Dates: start: 20050812, end: 20060404

REACTIONS (3)
  - AMNESIA [None]
  - INSOMNIA [None]
  - RESTLESS LEGS SYNDROME [None]
